FAERS Safety Report 7011538-5 (Version None)
Quarter: 2010Q3

REPORT INFORMATION
  Report Type: 
  Country: None (occurrence: None)
  Receive Date: 20100923
  Receipt Date: 20090220
  Transmission Date: 20110219
  Serious: No
  Sender: FDA-Public Use
  Company Number: US-WYE-H08310409

PATIENT
  Age: 86 Year
  Sex: Female
  Weight: 55.39 kg

DRUGS (6)
  1. PREMARIN [Suspect]
     Dosage: 1/4-1/2 INCH EVERY OTHER DAY
     Route: 067
  2. NORVASC [Concomitant]
  3. NEXIUM [Concomitant]
  4. TOPROL-XL [Concomitant]
  5. DIGOXIN [Concomitant]
  6. LIPITOR [Concomitant]

REACTIONS (2)
  - HOT FLUSH [None]
  - VULVOVAGINAL MYCOTIC INFECTION [None]
